FAERS Safety Report 19982133 (Version 5)
Quarter: 2022Q1

REPORT INFORMATION
  Report Type: Report from Study
  Country: US (occurrence: US)
  Receive Date: 20211022
  Receipt Date: 20220218
  Transmission Date: 20220423
  Serious: No
  Sender: FDA-Public Use
  Company Number: US-NOVARTISTESTPH-NVSC2021US240659

PATIENT
  Age: 57 Year
  Sex: Male

DRUGS (2)
  1. COSENTYX [Suspect]
     Active Substance: SECUKINUMAB
     Indication: Psoriatic arthropathy
     Dosage: 300 MG (Q WEEK FOR FIVE WEEKS AND THEN Q FOUR
     Route: 058
     Dates: start: 20210901
  2. COSENTYX [Suspect]
     Active Substance: SECUKINUMAB
     Dosage: 300 MG, QMO
     Route: 058
     Dates: start: 20211117

REACTIONS (16)
  - Pain [Unknown]
  - Grip strength decreased [Unknown]
  - Sleep disorder [Unknown]
  - Joint swelling [Unknown]
  - Arthralgia [Unknown]
  - Spinal pain [Unknown]
  - Pruritus [Unknown]
  - Psoriasis [Unknown]
  - Upper respiratory tract infection [Unknown]
  - Rhinorrhoea [Unknown]
  - Cough [Unknown]
  - Pyrexia [Unknown]
  - Anosmia [Unknown]
  - Ageusia [Unknown]
  - Drug ineffective [Unknown]
  - COVID-19 [Unknown]

NARRATIVE: CASE EVENT DATE: 20211019
